FAERS Safety Report 8499550-0 (Version None)
Quarter: 2012Q3

REPORT INFORMATION
  Report Type: 
  Country: None (occurrence: None)
  Receive Date: 20120710
  Receipt Date: 20120703
  Transmission Date: 20120928
  Serious: Yes (Other)
  Sender: FDA-Public Use
  Company Number: US-JNJFOC-20120702264

PATIENT

DRUGS (41)
  1. DOXORUBICIN HCL [Suspect]
     Dosage: EVERY 21 DAYS FOR 1 CYCLE
     Route: 042
  2. DOXORUBICIN HCL [Suspect]
     Dosage: EVERY 21 DAYS FOR 1 CYCLE
     Route: 042
  3. CYCLOPHOSPHAMIDE [Suspect]
     Dosage: 21 DAYS CYCLE
     Route: 065
  4. AVASTIN [Suspect]
     Route: 065
  5. VINCRISTINE [Suspect]
     Dosage: 21 DAYS CYCLE
     Route: 065
  6. PREDNISONE TAB [Suspect]
     Dosage: 21 DAYS CYCLE
     Route: 065
  7. CYCLOPHOSPHAMIDE [Suspect]
     Dosage: 21 DAYS CYCLE
     Route: 065
  8. DOXORUBICIN HCL [Suspect]
     Dosage: EVERY 21 DAYS FOR 1 CYCLE
     Route: 042
  9. DOXORUBICIN HCL [Suspect]
     Dosage: EVERY 21 DAYS FOR 1 CYCLE
     Route: 042
  10. PREDNISONE TAB [Suspect]
     Dosage: 21 DAYS CYCLE
     Route: 065
  11. CYCLOPHOSPHAMIDE [Suspect]
     Dosage: 21 DAYS CYCLE
     Route: 065
  12. CYCLOPHOSPHAMIDE [Suspect]
     Dosage: 21 DAYS CYCLE
     Route: 065
  13. DOXORUBICIN HCL [Suspect]
     Dosage: EVERY 21 DAYS FOR 1 CYCLE
     Route: 042
  14. VINCRISTINE [Suspect]
     Dosage: 21 DAYS CYCLE
     Route: 065
  15. VINCRISTINE [Suspect]
     Dosage: 21 DAYS CYCLE
     Route: 065
  16. VINCRISTINE [Suspect]
     Dosage: 21 DAYS CYCLE
     Route: 065
  17. PREDNISONE TAB [Suspect]
     Dosage: 21 DAYS CYCLE
     Route: 065
  18. CYCLOPHOSPHAMIDE [Suspect]
     Dosage: 21 DAYS CYCLE
     Route: 065
  19. DOXORUBICIN HCL [Suspect]
     Indication: PERIPHERAL T-CELL LYMPHOMA UNSPECIFIED
     Dosage: EVERY 21 DAYS FOR 1 CYCLE
     Route: 042
  20. AVASTIN [Suspect]
     Indication: PERIPHERAL T-CELL LYMPHOMA UNSPECIFIED
     Dosage: EVERY 3 WEEKS
     Route: 065
  21. AVASTIN [Suspect]
     Route: 065
  22. AVASTIN [Suspect]
     Route: 065
  23. VINCRISTINE [Suspect]
     Indication: PERIPHERAL T-CELL LYMPHOMA UNSPECIFIED
     Dosage: 21 DAYS CYCLE
     Route: 065
  24. VINCRISTINE [Suspect]
     Dosage: 21 DAYS CYCLE
     Route: 065
  25. VINCRISTINE [Suspect]
     Dosage: 21 DAYS CYCLE
     Route: 065
  26. DOXORUBICIN HCL [Suspect]
     Dosage: EVERY 21 DAYS FOR 1 CYCLE
     Route: 042
  27. AVASTIN [Suspect]
     Route: 065
  28. AVASTIN [Suspect]
     Route: 065
  29. AVASTIN [Suspect]
     Route: 065
  30. AVASTIN [Suspect]
     Route: 065
  31. VINCRISTINE [Suspect]
     Dosage: 21 DAYS CYCLE
     Route: 065
  32. PREDNISONE TAB [Suspect]
     Indication: PERIPHERAL T-CELL LYMPHOMA UNSPECIFIED
     Dosage: 21 DAYS CYCLE
     Route: 065
  33. PREDNISONE TAB [Suspect]
     Dosage: 21 DAYS CYCLE
     Route: 065
  34. CYCLOPHOSPHAMIDE [Suspect]
     Indication: PERIPHERAL T-CELL LYMPHOMA UNSPECIFIED
     Dosage: 21 DAYS CYCLE
     Route: 065
  35. CYCLOPHOSPHAMIDE [Suspect]
     Dosage: 21 DAYS CYCLE
     Route: 065
  36. CYCLOPHOSPHAMIDE [Suspect]
     Dosage: 21 DAYS CYCLE
     Route: 065
  37. DOXORUBICIN HCL [Suspect]
     Dosage: EVERY 21 DAYS FOR 1 CYCLE
     Route: 042
  38. AVASTIN [Suspect]
     Route: 065
  39. PREDNISONE TAB [Suspect]
     Dosage: 21 DAYS CYCLE
     Route: 065
  40. PREDNISONE TAB [Suspect]
     Dosage: 21 DAYS CYCLE
     Route: 065
  41. PREDNISONE TAB [Suspect]
     Dosage: 21 DAYS CYCLE
     Route: 065

REACTIONS (1)
  - VENTRICULAR TACHYCARDIA [None]
